FAERS Safety Report 4884351-2 (Version None)
Quarter: 2006Q1

REPORT INFORMATION
  Report Type: 
  Country: None (occurrence: None)
  Receive Date: 20060117
  Receipt Date: 20060117
  Transmission Date: 20060701
  Serious: Yes (Hospitalization)
  Sender: FDA-Public Use
  Company Number: None

PATIENT
  Age: 63 Year
  Sex: Male

DRUGS (1)
  1. CLONIDINE [Suspect]
     Indication: GOUT
     Dosage: ORAL;0.3 MILLIGRAM

REACTIONS (4)
  - DRUG DISPENSING ERROR [None]
  - HYPOTENSION [None]
  - MEDICATION ERROR [None]
  - WRONG DRUG ADMINISTERED [None]
